FAERS Safety Report 4404604-1 (Version None)
Quarter: 2004Q3

REPORT INFORMATION
  Report Type: 
  Country: None (occurrence: None)
  Receive Date: 20040722
  Receipt Date: 20040715
  Transmission Date: 20050211
  Serious: Yes (Other)
  Sender: FDA-Public Use
  Company Number: US-BRISTOL-MYERS SQUIBB COMPANY-12642088

PATIENT
  Sex: Female

DRUGS (7)
  1. ESTRACE [Suspect]
     Indication: HORMONE REPLACEMENT THERAPY
  2. ESTRADERM [Suspect]
     Indication: HORMONE REPLACEMENT THERAPY
  3. CYCRIN [Suspect]
     Indication: HORMONE REPLACEMENT THERAPY
  4. VIVELLE [Suspect]
     Indication: HORMONE REPLACEMENT THERAPY
     Dosage: DOT-PATCH
  5. PROVERA [Suspect]
     Indication: HORMONE REPLACEMENT THERAPY
  6. PREMARIN [Suspect]
     Indication: HORMONE REPLACEMENT THERAPY
  7. PREMPRO [Suspect]
     Indication: HORMONE REPLACEMENT THERAPY

REACTIONS (1)
  - BREAST CANCER [None]
